FAERS Safety Report 10257694 (Version 2)
Quarter: 2014Q2

REPORT INFORMATION
  Report Type: Spontaneous
  Country: US (occurrence: US)
  Receive Date: 20140625
  Receipt Date: 20140625
  Transmission Date: 20141212
  Serious: No
  Sender: FDA-Public Use
  Company Number: US-ASTRAZENECA-2009SE33704

PATIENT
  Age: 77 Year
  Sex: Male
  Weight: 81.6 kg

DRUGS (3)
  1. CRESTOR [Suspect]
     Indication: BLOOD CHOLESTEROL INCREASED
     Route: 048
  2. AMLODIPINE [Concomitant]
     Indication: HYPERTENSION
  3. PANTOPRAZOLE [Concomitant]

REACTIONS (4)
  - Myalgia [Unknown]
  - Hearing impaired [Not Recovered/Not Resolved]
  - Dementia [Not Recovered/Not Resolved]
  - Hypertension [Unknown]
